FAERS Safety Report 9189382 (Version 2)
Quarter: 2013Q3

REPORT INFORMATION
  Report Type: Report from Study
  Country: BR (occurrence: BR)
  Receive Date: 20130326
  Receipt Date: 20130718
  Transmission Date: 20140515
  Serious: Yes (Other)
  Sender: FDA-Public Use
  Company Number: PHHY2011BR38411

PATIENT
  Sex: Female

DRUGS (5)
  1. SANDOSTATIN LAR [Suspect]
     Dosage: 20 MG, UNK
     Dates: start: 20050101
  2. SANDOSTATIN LAR [Suspect]
     Dosage: 30 MG, UNK
  3. SANDOSTATIN LAR [Suspect]
     Dosage: 40 MG, UNK
  4. SANDOSTATIN LAR [Suspect]
     Dosage: 30 MG, UNK
     Dates: start: 201206
  5. SANDOSTATIN LAR [Suspect]
     Dosage: 30 MG, QMO

REACTIONS (7)
  - Lung neoplasm [Not Recovered/Not Resolved]
  - Pyrexia [Not Recovered/Not Resolved]
  - Malaise [Not Recovered/Not Resolved]
  - Bone disorder [Not Recovered/Not Resolved]
  - Neoplasm [Recovering/Resolving]
  - Drug ineffective [Not Recovered/Not Resolved]
  - Headache [Recovering/Resolving]
